FAERS Safety Report 5241915-4 (Version None)
Quarter: 2007Q1

REPORT INFORMATION
  Report Type: 
  Country: None (occurrence: None)
  Receive Date: 20070220
  Receipt Date: 20070213
  Transmission Date: 20070707
  Serious: Yes (Hospitalization, Other)
  Sender: FDA-Public Use
  Company Number: US-PFIZER INC-2007011911

PATIENT
  Sex: Male
  Weight: 113.4 kg

DRUGS (1)
  1. CELEBREX [Suspect]
     Indication: PAIN

REACTIONS (6)
  - AMNESIA [None]
  - CHEST PAIN [None]
  - DEPRESSION [None]
  - EPISTAXIS [None]
  - HEADACHE [None]
  - ULCER HAEMORRHAGE [None]
